FAERS Safety Report 8815447 (Version 2)
Quarter: 2012Q4

REPORT INFORMATION
  Report Type: 
  Country: FR (occurrence: FR)
  Receive Date: 20120928
  Receipt Date: 20121012
  Transmission Date: 20130627
  Serious: Yes (Other)
  Sender: FDA-Public Use
  Company Number: FR-ASTRAZENECA-2012SE73307

PATIENT
  Age: 13480 Day
  Sex: Male
  Weight: 80 kg

DRUGS (3)
  1. XEROQUEL [Suspect]
     Indication: BIPOLAR DISORDER
     Dosage: DOSE PROGRESSIVELY INCREASED TO 300 MG PER DAY
     Route: 048
     Dates: start: 20120905
  2. SEROPLEX [Interacting]
     Route: 048
     Dates: start: 201107
  3. LEXOMIL [Suspect]
     Route: 048
     Dates: start: 201107

REACTIONS (2)
  - Drug interaction [Unknown]
  - Urinary retention [Recovered/Resolved]
